FAERS Safety Report 4323953-9 (Version None)
Quarter: 2004Q1

REPORT INFORMATION
  Report Type: 
  Country: None (occurrence: None)
  Receive Date: 20040326
  Receipt Date: 20031120
  Transmission Date: 20041129
  Serious: No
  Sender: FDA-Public Use
  Company Number: US-GLAXOSMITHKLINE-A0440579A

PATIENT
  Age: 51 Year
  Sex: Female

DRUGS (6)
  1. ADVAIR DISKUS 100/50 [Suspect]
     Indication: ASTHMA
     Dosage: 1PUFF PER DAY
     Route: 055
     Dates: start: 20031114
  2. SEREVENT [Suspect]
     Indication: ASTHMA
     Dosage: 1PUFF TWICE PER DAY
     Route: 055
     Dates: start: 20031101, end: 20031209
  3. ACCOLATE [Suspect]
     Indication: ASTHMA
     Route: 048
     Dates: start: 20030101, end: 20030101
  4. SINGULAIR [Suspect]
     Indication: ASTHMA
     Route: 048
     Dates: start: 20030101, end: 20030101
  5. ASPIRIN [Concomitant]
  6. FLOVENT [Concomitant]
     Route: 055

REACTIONS (6)
  - ABDOMINAL PAIN UPPER [None]
  - DIZZINESS [None]
  - DRUG INEFFECTIVE [None]
  - ILL-DEFINED DISORDER [None]
  - NASAL CONGESTION [None]
  - PHARMACEUTICAL PRODUCT COMPLAINT [None]
